FAERS Safety Report 9065189 (Version 1)
Quarter: 2013Q1

REPORT INFORMATION
  Report Type: Spontaneous
  Country: US (occurrence: US)
  Receive Date: 20130131
  Receipt Date: 20130131
  Transmission Date: 20140127
  Serious: No
  Sender: FDA-Public Use
  Company Number: US-ABBOTT-12P-163-1009703-00

PATIENT
  Sex: Female
  Weight: 70.82 kg

DRUGS (9)
  1. HUMIRA [Suspect]
     Indication: PSORIASIS
     Dates: start: 2012, end: 20120520
  2. HUMIRA [Suspect]
     Dosage: TOOK PNLY 2 DOSES
     Dates: start: 201210
  3. LORAZEPAM [Concomitant]
     Indication: ANXIETY
  4. ZOLPIDEM [Concomitant]
     Indication: INSOMNIA
  5. CALCIPOTRIENE [Concomitant]
     Indication: PSORIASIS
     Dosage: APPLY TP SCALP
  6. CLOBETASOL PROPIONATE [Concomitant]
     Indication: PSORIASIS
     Dosage: APPLY TP SCALP
  7. AMLODIPINE [Concomitant]
     Indication: HYPERTENSION
     Dosage: APPLY TP SCALP
  8. METHOTREXATE [Concomitant]
     Indication: PSORIASIS
     Dosage: APPLY TP SCALP
     Dates: end: 2012
  9. FOLIC ACID [Concomitant]
     Indication: VITAMIN SUPPLEMENTATION
     Dosage: APPLY TP SCALP

REACTIONS (2)
  - Hepatic enzyme increased [Recovering/Resolving]
  - Hepatic enzyme increased [Not Recovered/Not Resolved]
